FAERS Safety Report 4871703-X (Version None)
Quarter: 2005Q4

REPORT INFORMATION
  Report Type: 
  Country: None (occurrence: None)
  Receive Date: 20051230
  Receipt Date: 20051219
  Transmission Date: 20060501
  Serious: Yes (Hospitalization)
  Sender: FDA-Public Use
  Company Number: 2005155274

PATIENT
  Age: 40 Year
  Sex: Female

DRUGS (3)
  1. SOMAVERT [Suspect]
     Indication: ACROMEGALY
     Dosage: 10 MG (DAILY), SUBCUTANEOUS
     Route: 058
     Dates: start: 20051015, end: 20051020
  2. HYDROCORTISONE [Concomitant]
  3. ENALAPRIL MALEATE [Concomitant]

REACTIONS (3)
  - INJECTION SITE HYPERSENSITIVITY [None]
  - PRURITUS [None]
  - SKIN INFLAMMATION [None]
